FAERS Safety Report 4846468-8 (Version None)
Quarter: 2005Q4

REPORT INFORMATION
  Report Type: 
  Country: None (occurrence: None)
  Receive Date: 20051202
  Receipt Date: 20051118
  Transmission Date: 20060501
  Serious: Yes (Hospitalization, Other)
  Sender: FDA-Public Use
  Company Number: KII-2005-0019819

PATIENT
  Age: 67 Year
  Sex: Female

DRUGS (7)
  1. HYDROMORPHONE HCL [Suspect]
     Dosage: ORAL
     Route: 048
  2. ACE INHIBITOR NOS() [Suspect]
     Dosage: ORAL
     Route: 048
  3. BETA BLOCKING AGENTS() [Suspect]
     Dosage: ORAL
     Route: 048
  4. GASTROINTESTINAL PREPARATION() [Suspect]
     Dosage: ORAL
     Route: 048
  5. SSRI() [Suspect]
     Dosage: ORAL
     Route: 048
  6. CALCIUM CHANNEL BLOCKERS() [Suspect]
     Dosage: ORAL
     Route: 048
  7. BENZODIAZEPINE DERIVATIVES() [Suspect]

REACTIONS (4)
  - COMA [None]
  - DRUG ABUSER [None]
  - LETHARGY [None]
  - OXYGEN SATURATION ABNORMAL [None]
